FAERS Safety Report 20773030 (Version 1)
Quarter: 2022Q2

REPORT INFORMATION
  Report Type: Other
  Country: BR (occurrence: BR)
  Receive Date: 20220502
  Receipt Date: 20220502
  Transmission Date: 20220721
  Serious: Yes (Other)
  Sender: FDA-Public Use
  Company Number: BR-002147023-NVSC2021BR272998

PATIENT
  Age: 37 Year
  Sex: Female
  Weight: 77 kg

DRUGS (3)
  1. XOLAIR [Suspect]
     Active Substance: OMALIZUMAB
     Indication: Chronic spontaneous urticaria
     Route: 065
  2. XOLAIR [Suspect]
     Active Substance: OMALIZUMAB
     Dosage: (10 WEEKS)
     Route: 065
     Dates: start: 20211001
  3. XOLAIR [Suspect]
     Active Substance: OMALIZUMAB
     Route: 058
     Dates: start: 202007

REACTIONS (2)
  - Candida infection [Not Recovered/Not Resolved]
  - Inappropriate schedule of product administration [Unknown]
